FAERS Safety Report 17187843 (Version 2)
Quarter: 2019Q4

REPORT INFORMATION
  Report Type: Report from Study
  Country: None (occurrence: US)
  Receive Date: 20191221
  Receipt Date: 20191224
  Transmission Date: 20200122
  Serious: Yes (Hospitalization, Other)
  Sender: FDA-Public Use
  Company Number: US-ABBVIE-19K-163-3165841-00

PATIENT
  Age: 79 Year
  Sex: Male
  Weight: 64.01 kg

DRUGS (8)
  1. NITROSTAT [Concomitant]
     Active Substance: NITROGLYCERIN
     Indication: CHEST PAIN
     Dosage: 0.4 MG SL Q5 MIN PRN
  2. ASPIRIN. [Concomitant]
     Active Substance: ASPIRIN
     Indication: PRODUCT USED FOR UNKNOWN INDICATION
     Route: 048
  3. LOPRESSOR [Concomitant]
     Active Substance: METOPROLOL TARTRATE
     Indication: PRODUCT USED FOR UNKNOWN INDICATION
     Dosage: 25 MG, BID
     Route: 048
  4. IMBRUVICA [Suspect]
     Active Substance: IBRUTINIB
     Indication: WALDENSTROM^S MACROGLOBULINAEMIA
     Dosage: 420 MG, QD
     Route: 048
     Dates: start: 20190524
  5. POLYETHYLENE GLYCOL [Concomitant]
     Active Substance: POLYETHYLENE GLYCOLS
     Indication: CONSTIPATION
     Route: 048
  6. IMBRUVICA [Suspect]
     Active Substance: IBRUTINIB
     Dosage: 420 MG, QD
     Route: 048
     Dates: start: 20190910
  7. LIPITOR [Concomitant]
     Active Substance: ATORVASTATIN CALCIUM
     Indication: PRODUCT USED FOR UNKNOWN INDICATION
     Route: 048
  8. MULTIVITAMIN [Concomitant]
     Active Substance: VITAMINS
     Indication: PRODUCT USED FOR UNKNOWN INDICATION
     Route: 048

REACTIONS (17)
  - Oedema [Unknown]
  - Weight decreased [Unknown]
  - Fluid retention [Not Recovered/Not Resolved]
  - Fatigue [Unknown]
  - Depression [Unknown]
  - Central venous catheterisation [Unknown]
  - Acute kidney injury [Recovered/Resolved]
  - Pyrexia [Unknown]
  - Malaise [Unknown]
  - Pleural effusion [Recovered/Resolved]
  - Anaemia [Unknown]
  - Thrombocytopenia [Recovered/Resolved]
  - Hospitalisation [Unknown]
  - Dyspnoea exertional [Recovered/Resolved]
  - Infection [Not Recovered/Not Resolved]
  - Decreased appetite [Unknown]
  - Asthenia [Unknown]

NARRATIVE: CASE EVENT DATE: 201910
